APPROVED DRUG PRODUCT: NITRO-BID
Active Ingredient: NITROGLYCERIN
Strength: 5MG/ML
Dosage Form/Route: INJECTABLE;INJECTION
Application: N018621 | Product #001
Applicant: SANOFI AVENTIS US LLC
Approved: Jan 5, 1982 | RLD: No | RS: No | Type: DISCN